FAERS Safety Report 17981619 (Version 6)
Quarter: 2021Q2

REPORT INFORMATION
  Report Type: Spontaneous
  Country: CA (occurrence: CA)
  Receive Date: 20200706
  Receipt Date: 20210407
  Transmission Date: 20210717
  Serious: Yes (Hospitalization, Other)
  Sender: FDA-Public Use
  Company Number: CA-CELLTRION INC.-2019CA022976

PATIENT

DRUGS (11)
  1. INFLECTRA [Suspect]
     Active Substance: INFLIXIMAB-DYYB
     Indication: CROHN^S DISEASE
     Dosage: 500 MG, Q 0, 2, 6 WEEKS, THEN EVERY 8 WEEKS (WEEK 0 DOSE)
     Route: 042
     Dates: start: 20190703, end: 20190703
  2. INFLECTRA [Suspect]
     Active Substance: INFLIXIMAB-DYYB
     Dosage: 900 MG EVERY 8 WEEKS
     Route: 042
     Dates: start: 20191210
  3. INFLECTRA [Suspect]
     Active Substance: INFLIXIMAB-DYYB
     Dosage: 900 MG EVERY 8 WEEKS
     Route: 042
     Dates: start: 20200519
  4. INFLECTRA [Suspect]
     Active Substance: INFLIXIMAB-DYYB
     Dosage: 900 MG EVERY 8 WEEKS
     Route: 042
     Dates: start: 20200519
  5. INFLECTRA [Suspect]
     Active Substance: INFLIXIMAB-DYYB
     Dosage: 500 MG, EVERY 0, 2, 6 WEEKS THEN EVERY 8 WEEKS (WEEK 2 DOSE)
     Route: 042
     Dates: start: 20190717, end: 20190717
  6. INFLECTRA [Suspect]
     Active Substance: INFLIXIMAB-DYYB
     Dosage: 500 MG, EVERY 0, 2, 6 WEEKS THEN EVERY 8 WEEKS (WEEK 6 DOSE )
     Route: 042
     Dates: start: 20190814, end: 20190814
  7. INFLECTRA [Suspect]
     Active Substance: INFLIXIMAB-DYYB
     Dosage: 900 MG EVERY 8 WEEKS
     Route: 042
     Dates: start: 20191210
  8. INFLECTRA [Suspect]
     Active Substance: INFLIXIMAB-DYYB
     Dosage: 900 MG EVERY 8 WEEKS
     Route: 042
     Dates: start: 20201203
  9. INFLECTRA [Suspect]
     Active Substance: INFLIXIMAB-DYYB
     Dosage: 500 MG, EVERY 0, 2, 6 WEEKS THEN EVERY 8 WEEKS
     Route: 042
     Dates: start: 20191015, end: 20191015
  10. INFLECTRA [Suspect]
     Active Substance: INFLIXIMAB-DYYB
     Dosage: 900 MG EVERY 8 WEEKS
     Route: 042
     Dates: start: 20201203
  11. INFLECTRA [Suspect]
     Active Substance: INFLIXIMAB-DYYB
     Dosage: 900 MG EVERY 8 WEEKS
     Route: 042
     Dates: start: 20201203

REACTIONS (12)
  - Muscle spasms [Unknown]
  - Pyrexia [Unknown]
  - Intentional product use issue [Unknown]
  - Heart rate increased [Unknown]
  - Drug level decreased [Unknown]
  - Heart rate irregular [Not Recovered/Not Resolved]
  - Infection [Unknown]
  - Off label use [Unknown]
  - Dementia [Unknown]
  - Blood pressure increased [Not Recovered/Not Resolved]
  - Memory impairment [Unknown]
  - Inappropriate schedule of product administration [Unknown]

NARRATIVE: CASE EVENT DATE: 20190703
